FAERS Safety Report 4267986-X (Version None)
Quarter: 2004Q1

REPORT INFORMATION
  Report Type: 
  Country: None (occurrence: None)
  Receive Date: 20040107
  Receipt Date: 20030402
  Transmission Date: 20041129
  Serious: Yes (Death)
  Sender: FDA-Public Use
  Company Number: 2003UW04310

PATIENT
  Age: 26 Year
  Sex: Male

DRUGS (2)
  1. DIPRIVAN [Suspect]
     Indication: ENDOSCOPIC RETROGRADE CHOLANGIOPANCREATOGRAPHY
     Dates: start: 20030303, end: 20030303
  2. SUCCINYLCHOLINE CHLORIDE [Suspect]
     Dates: start: 20030303, end: 20030303

REACTIONS (2)
  - BRADYCARDIA [None]
  - CARDIAC ARREST [None]
